FAERS Safety Report 7089503-1 (Version None)
Quarter: 2010Q4

REPORT INFORMATION
  Report Type: 
  Country: None (occurrence: None)
  Receive Date: 20101108
  Receipt Date: 20101026
  Transmission Date: 20110411
  Serious: No
  Sender: FDA-Public Use
  Company Number: US-ASTRAZENECA-2010SE26976

PATIENT
  Age: 45 Year
  Sex: Female
  Weight: 45.4 kg

DRUGS (7)
  1. SYMBICORT [Suspect]
     Indication: ASTHMA
     Dosage: 160/4.5 UG 2 PUFFS
     Route: 055
     Dates: start: 20090511, end: 20100803
  2. OMEPRAZOLE [Suspect]
     Route: 048
  3. ALBUTEROL [Concomitant]
     Indication: ASTHMA
     Dosage: 2 PUFFS EVERY FOUR HOURS AS REQUIRED
     Route: 055
  4. ALBUTEROL [Concomitant]
     Dosage: EVERY FOUR HOURS PRN
     Route: 065
  5. FLONASE [Concomitant]
     Route: 045
  6. PREDNISOLONE [Concomitant]
     Route: 065
  7. ZYRTEC [Concomitant]
     Route: 048

REACTIONS (1)
  - RETINAL DETACHMENT [None]
